FAERS Safety Report 5918337-3 (Version None)
Quarter: 2008Q4

REPORT INFORMATION
  Report Type: 
  Country: None (occurrence: None)
  Receive Date: 20081010
  Receipt Date: 20080929
  Transmission Date: 20090506
  Serious: No
  Sender: FDA-Public Use
  Company Number: US024758

PATIENT
  Sex: Female

DRUGS (5)
  1. FENTORA [Suspect]
     Indication: NEUROPATHY PERIPHERAL
     Dosage: 400 UG BUCCAL
     Route: 002
  2. FENTORA [Suspect]
     Indication: SYSTEMIC LUPUS ERYTHEMATOSUS
     Dosage: 400 UG BUCCAL
     Route: 002
  3. ACTIQ [Concomitant]
  4. MORPHINE [Concomitant]
  5. OXYCODONE HCL [Concomitant]

REACTIONS (2)
  - DRUG PRESCRIBING ERROR [None]
  - PRODUCT QUALITY ISSUE [None]
